FAERS Safety Report 17921988 (Version 1)
Quarter: 2020Q2

REPORT INFORMATION
  Report Type: Spontaneous
  Country: DE (occurrence: DE)
  Receive Date: 20200622
  Receipt Date: 20200622
  Transmission Date: 20200714
  Serious: Yes (Life-Threatening, Hospitalization)
  Sender: FDA-Public Use
  Company Number: DE-TEVA-2020-DE-1789084

PATIENT
  Age: 83 Year
  Sex: Male
  Weight: 68 kg

DRUGS (4)
  1. BISOPROLOL [Suspect]
     Active Substance: BISOPROLOL
     Dosage: 5 MILLIGRAM DAILY; 1-0-1-0
  2. ARANESP 30MIKROGRAMM [Concomitant]
     Dosage: 30 MICORGRAM, ON FRIDAYS
     Route: 058
  3. LEVOTHYROXIN-NATRIUM [Concomitant]
     Active Substance: LEVOTHYROXINE SODIUM
     Dosage: 100 MICROGRAM DAILY;  1-0-0-0
  4. FOLSAN 5MG [Concomitant]
     Dosage: 5 MILLIGRAM DAILY;  1-0-0-0

REACTIONS (5)
  - Palpitations [Unknown]
  - General physical health deterioration [Unknown]
  - Dizziness [Unknown]
  - Dyspnoea [Unknown]
  - Hypophagia [Unknown]
